FAERS Safety Report 7460118-6 (Version None)
Quarter: 2011Q2

REPORT INFORMATION
  Report Type: 
  Country: None (occurrence: None)
  Receive Date: 20110505
  Receipt Date: 20110428
  Transmission Date: 20111010
  Serious: Yes (Hospitalization, Other)
  Sender: FDA-Public Use
  Company Number: US-ELI_LILLY_AND_COMPANY-US201005000628

PATIENT
  Sex: Male
  Weight: 102.4 kg

DRUGS (7)
  1. ACTOS [Concomitant]
     Indication: DIABETES MELLITUS
     Route: 048
  2. JANUVIA [Concomitant]
     Indication: DIABETES MELLITUS
     Route: 048
  3. METFORMIN [Concomitant]
     Indication: DIABETES MELLITUS
     Route: 048
  4. BYETTA [Suspect]
     Indication: DIABETES MELLITUS
     Dates: start: 20060201, end: 20091001
  5. SIMVASTATIN [Concomitant]
  6. FUROSEMIDE [Concomitant]
     Indication: DIURETIC THERAPY
  7. BINOCETIN [Concomitant]
     Route: 048

REACTIONS (3)
  - RENAL FAILURE CHRONIC [None]
  - PANCREATITIS [None]
  - RENAL FAILURE ACUTE [None]
